FAERS Safety Report 8453336-1 (Version None)
Quarter: 2012Q2

REPORT INFORMATION
  Report Type: 
  Country: None (occurrence: None)
  Receive Date: 20120620
  Receipt Date: 20120513
  Transmission Date: 20120825
  Serious: No
  Sender: FDA-Public Use
  Company Number: US-VERTEX PHARMACEUTICALS INC.-AE-2012-007063

PATIENT
  Sex: Male
  Weight: 90.8 kg

DRUGS (7)
  1. RIBASPHERE [Concomitant]
     Indication: HEPATITIS C
     Route: 048
     Dates: start: 20120511
  2. NEXIUM [Concomitant]
     Indication: DYSPEPSIA
  3. PEGASYS [Concomitant]
     Indication: HEPATITIS C
     Route: 058
     Dates: start: 20120511
  4. MULTI-VITAMIN [Concomitant]
  5. INCIVEK [Suspect]
     Indication: HEPATITIS C
     Route: 048
     Dates: start: 20120511
  6. SYNTHROID [Concomitant]
  7. NEXIUM [Concomitant]
     Indication: GASTROOESOPHAGEAL REFLUX DISEASE

REACTIONS (4)
  - MUSCLE TIGHTNESS [None]
  - BACK PAIN [None]
  - MUSCLE SPASMS [None]
  - CHILLS [None]
